FAERS Safety Report 10542871 (Version 1)
Quarter: 2014Q4

REPORT INFORMATION
  Report Type: Spontaneous
  Country: US (occurrence: None)
  Receive Date: 20141023
  Receipt Date: 20141023
  Transmission Date: 20150529
  Serious: Yes (Hospitalization)
  Sender: FDA-Public Use
  Company Number: None

PATIENT
  Age: 94 Year
  Sex: Female

DRUGS (1)
  1. ONDANSETRON [Suspect]
     Active Substance: ONDANSETRON
     Route: 042

REACTIONS (5)
  - Vomiting [None]
  - Unresponsive to stimuli [None]
  - Oxygen saturation decreased [None]
  - Drooling [None]
  - Heart rate increased [None]

NARRATIVE: CASE EVENT DATE: 20140923
